FAERS Safety Report 24330219 (Version 3)
Quarter: 2025Q3

REPORT INFORMATION
  Report Type: Spontaneous
  Country: US (occurrence: US)
  Receive Date: 20240917
  Receipt Date: 20250816
  Transmission Date: 20251021
  Serious: No
  Sender: ALEXION PHARMACEUTICALS
  Company Number: 2024A212096

PATIENT
  Sex: Female

DRUGS (1)
  1. BREZTRI [Suspect]
     Active Substance: BUDESONIDE\FORMOTEROL\GLYCOPYRROLATE

REACTIONS (5)
  - Wrong technique in product usage process [Unknown]
  - Memory impairment [Unknown]
  - Visual impairment [Unknown]
  - Illness [Unknown]
  - Product dose omission issue [Unknown]
